FAERS Safety Report 14576266 (Version 1)
Quarter: 2018Q1

REPORT INFORMATION
  Report Type: Spontaneous
  Country: US (occurrence: US)
  Receive Date: 20180226
  Receipt Date: 20180226
  Transmission Date: 20180509
  Serious: Yes (Other)
  Sender: FDA-Public Use
  Company Number: None

PATIENT
  Age: 79 Year
  Sex: Male
  Weight: 106.6 kg

DRUGS (2)
  1. AMLODIPINE BES/BENAZEPRIL 5-20MG [Suspect]
     Active Substance: AMLODIPINE BESYLATE\BENAZEPRIL HYDROCHLORIDE
     Indication: HYPERTENSION
     Route: 048
     Dates: start: 20180201
  2. LOTREL GENERIC [Suspect]
     Active Substance: AMLODIPINE BESYLATE\BENAZEPRIL HYDROCHLORIDE
     Dates: start: 20180215

REACTIONS (3)
  - Haemorrhage [None]
  - Injection site bruising [None]
  - Drug ineffective [None]

NARRATIVE: CASE EVENT DATE: 20180214
